FAERS Safety Report 22856386 (Version 2)
Quarter: 2024Q3

REPORT INFORMATION
  Report Type: Spontaneous
  Country: KR (occurrence: KR)
  Receive Date: 20230823
  Receipt Date: 20240829
  Transmission Date: 20241016
  Serious: Yes (Other)
  Sender: MYLAN
  Company Number: KR-MYLANLABS-2023M1088134

PATIENT
  Sex: Male

DRUGS (1)
  1. NORVASC [Suspect]
     Active Substance: AMLODIPINE BESYLATE
     Indication: Product used for unknown indication
     Dosage: UNK
     Route: 048

REACTIONS (3)
  - Dizziness [Unknown]
  - Drug ineffective [Unknown]
  - Wrong product administered [Unknown]

NARRATIVE: CASE EVENT DATE: 20191101
